FAERS Safety Report 21313276 (Version 1)
Quarter: 2022Q3

REPORT INFORMATION
  Report Type: Spontaneous
  Country: US (occurrence: US)
  Receive Date: 20220909
  Receipt Date: 20220909
  Transmission Date: 20221027
  Serious: No
  Sender: FDA-Public Use
  Company Number: US-INCYTE CORPORATION-2022IN008466

PATIENT

DRUGS (2)
  1. JAKAFI [Suspect]
     Active Substance: RUXOLITINIB
     Indication: Myeloproliferative neoplasm
     Dosage: 10 MILLIGRAM, BID ON MON/THU
     Route: 048
     Dates: start: 20200417
  2. JAKAFI [Suspect]
     Active Substance: RUXOLITINIB
     Dosage: 10 MILLIGRAM, QD ALL OTHER DAYS OF WEEK
     Route: 048
     Dates: start: 20200417

REACTIONS (2)
  - Increased tendency to bruise [Unknown]
  - Off label use [Unknown]

NARRATIVE: CASE EVENT DATE: 20200417
